FAERS Safety Report 14410540 (Version 1)
Quarter: 2018Q1

REPORT INFORMATION
  Report Type: Spontaneous
  Country: US (occurrence: US)
  Receive Date: 20180117
  Receipt Date: 20180117
  Transmission Date: 20180509
  Serious: Yes (Hospitalization, Disabling, Other)
  Sender: FDA-Public Use
  Company Number: None

PATIENT
  Age: 80 Year
  Sex: Male
  Weight: 72 kg

DRUGS (1)
  1. CITALOPRAM [Suspect]
     Active Substance: CITALOPRAM HYDROBROMIDE
     Indication: DEPRESSION

REACTIONS (6)
  - Parkinson^s disease [None]
  - Cardiac disorder [None]
  - Gastrointestinal disorder [None]
  - Lung disorder [None]
  - Dementia [None]
  - Cerebral haemorrhage [None]

NARRATIVE: CASE EVENT DATE: 20180101
